FAERS Safety Report 6921547-X (Version None)
Quarter: 2010Q3

REPORT INFORMATION
  Report Type: 
  Country: None (occurrence: None)
  Receive Date: 20100812
  Receipt Date: 20100803
  Transmission Date: 20110219
  Serious: Yes (Other)
  Sender: FDA-Public Use
  Company Number: PHHY2010BR52067

PATIENT
  Sex: Female

DRUGS (2)
  1. EXELON [Suspect]
     Dosage: 27MG/15CM2, UNK
     Route: 062
  2. EXELON [Suspect]
     Dosage: 18MG/10CM2, UNK
     Route: 062

REACTIONS (4)
  - DYSENTERY [None]
  - FALL [None]
  - FEMUR FRACTURE [None]
  - HEADACHE [None]
